FAERS Safety Report 6993368-3 (Version None)
Quarter: 2010Q3

REPORT INFORMATION
  Report Type: 
  Country: None (occurrence: None)
  Receive Date: 20100917
  Receipt Date: 20100208
  Transmission Date: 20110219
  Serious: No
  Sender: FDA-Public Use
  Company Number: US-ASTRAZENECA-2010SE05704

PATIENT
  Sex: Female
  Weight: 68 kg

DRUGS (3)
  1. SEROQUEL XR [Suspect]
     Indication: INSOMNIA
     Route: 048
     Dates: start: 20090101, end: 20100101
  2. ASCORBIC ACID [Concomitant]
  3. VITAMIN D [Concomitant]

REACTIONS (11)
  - CONSTIPATION [None]
  - DYSPHAGIA [None]
  - HALLUCINATION [None]
  - HYPOAESTHESIA [None]
  - JOINT SWELLING [None]
  - LOSS OF CONSCIOUSNESS [None]
  - NIGHT SWEATS [None]
  - OEDEMA PERIPHERAL [None]
  - PALPITATIONS [None]
  - PARAESTHESIA [None]
  - WEIGHT INCREASED [None]
